FAERS Safety Report 9604628 (Version 1)
Quarter: 2013Q4

REPORT INFORMATION
  Report Type: Spontaneous
  Country: US (occurrence: US)
  Receive Date: 20131008
  Receipt Date: 20131008
  Transmission Date: 20140711
  Serious: Yes (Other)
  Sender: FDA-Public Use
  Company Number: US-UCBSA-099669

PATIENT
  Age: 10 Year
  Sex: Female

DRUGS (18)
  1. LEVETIRACETAM [Suspect]
     Indication: GRAND MAL CONVULSION
     Dosage: 2400 MG DAILY
  2. LEVETIRACETAM [Suspect]
     Indication: STATUS EPILEPTICUS
     Dosage: 2400 MG DAILY
  3. LEVETIRACETAM [Suspect]
     Indication: GRAND MAL CONVULSION
     Dosage: 3200 MG DAILY
  4. LEVETIRACETAM [Suspect]
     Indication: STATUS EPILEPTICUS
     Dosage: 3200 MG DAILY
  5. FOSPHENYTOIN [Suspect]
     Indication: GRAND MAL CONVULSION
     Dosage: 600 MG DAILY
  6. FOSPHENYTOIN [Suspect]
     Indication: STATUS EPILEPTICUS
     Dosage: 600 MG DAILY
  7. PHENOBARBITAL [Suspect]
     Indication: STATUS EPILEPTICUS
     Dosage: 280 MG DAILY
  8. PHENOBARBITAL [Suspect]
     Indication: GRAND MAL CONVULSION
     Dosage: 280 MG DAILY
  9. MIDAZOLAM [Suspect]
     Indication: GRAND MAL CONVULSION
     Dosage: 0.2 MG/KG/ H, 8 MG/H
  10. MIDAZOLAM [Suspect]
     Indication: STATUS EPILEPTICUS
     Dosage: 0.2 MG/KG/ H, 8 MG/H
  11. MIDAZOLAM [Suspect]
     Indication: GRAND MAL CONVULSION
     Dosage: 0.05 MG/KG/H (2 MG/H).
  12. MIDAZOLAM [Suspect]
     Indication: STATUS EPILEPTICUS
     Dosage: 0.05 MG/KG/H (2 MG/H).
  13. LORAZEPAM [Suspect]
     Indication: GRAND MAL CONVULSION
     Dosage: (INTERMITTENT) 4 MG
  14. PENTOBARBITAL [Concomitant]
     Indication: CONVULSION
     Dosage: 3 MG/KG/H
  15. PENTOBARBITAL [Concomitant]
     Indication: CONVULSION
     Dosage: 3.5 MG/KG/H
  16. PENTOBARBITAL [Concomitant]
     Indication: CONVULSION
     Dosage: WEANED OFF
  17. VALPROIC ACID [Concomitant]
     Indication: CONVULSION
     Dosage: 4000 MG DAILY
  18. DOPAMINE [Concomitant]
     Indication: HAEMODYNAMIC INSTABILITY

REACTIONS (5)
  - Status epilepticus [Unknown]
  - Haemodynamic instability [Unknown]
  - Drug ineffective [Unknown]
  - Drug ineffective for unapproved indication [Unknown]
  - Overdose [Unknown]
